FAERS Safety Report 5275202-5 (Version None)
Quarter: 2007Q1

REPORT INFORMATION
  Report Type: 
  Country: None (occurrence: None)
  Receive Date: 20061213
  Receipt Date: 20060216
  Transmission Date: 20070707
  Serious: Yes (Hospitalization)
  Sender: FDA-Public Use
  Company Number: 2006UW02627

PATIENT
  Age: 51 Year
  Sex: Female

DRUGS (2)
  1. SEROQUEL [Suspect]
     Indication: ANXIETY
     Dosage: 700 MG PO
     Route: 048
     Dates: start: 20050201
  2. SEROQUEL [Suspect]
     Indication: DEPRESSION
     Dosage: 700 MG PO
     Route: 048
     Dates: start: 20050201

REACTIONS (1)
  - INTESTINAL OBSTRUCTION [None]
